FAERS Safety Report 7058581-8 (Version None)
Quarter: 2010Q4

REPORT INFORMATION
  Report Type: 
  Country: None (occurrence: None)
  Receive Date: 20101022
  Receipt Date: 20101020
  Transmission Date: 20110411
  Serious: Yes (Congenital Anomaly)
  Sender: FDA-Public Use
  Company Number: A0884905A

PATIENT

DRUGS (4)
  1. COMBIVIR [Suspect]
     Indication: ANTIVIRAL TREATMENT
     Dates: start: 20090115, end: 20091221
  2. KALETRA [Suspect]
     Indication: ANTIVIRAL TREATMENT
     Dates: start: 20090115, end: 20091221
  3. PREZISTA [Suspect]
     Indication: ANTIVIRAL TREATMENT
     Dosage: 800MG PER DAY
     Dates: start: 20071219, end: 20090115
  4. NORVIR [Suspect]
     Indication: ANTIVIRAL TREATMENT
     Dates: start: 20081219, end: 20090114

REACTIONS (1)
  - DRUG EXPOSURE DURING PREGNANCY [None]
